FAERS Safety Report 7806103-3 (Version None)
Quarter: 2011Q4

REPORT INFORMATION
  Report Type: 
  Country: None (occurrence: None)
  Receive Date: 20111011
  Receipt Date: 20111006
  Transmission Date: 20120403
  Serious: No
  Sender: FDA-Public Use
  Company Number: US-PFIZER INC-2011240001

PATIENT
  Sex: Male

DRUGS (1)
  1. ARGATROBAN [Suspect]
     Dosage: 0.4MCG/KG/MIN
     Route: 041

REACTIONS (1)
  - INTERNATIONAL NORMALISED RATIO INCREASED [None]
